FAERS Safety Report 17073582 (Version 1)
Quarter: 2019Q4

REPORT INFORMATION
  Report Type: Spontaneous
  Country: IE (occurrence: IE)
  Receive Date: 20191126
  Receipt Date: 20191126
  Transmission Date: 20200122
  Serious: Yes (Other)
  Sender: FDA-Public Use
  Company Number: IE-REGENERON PHARMACEUTICALS, INC.-2019-68997

PATIENT

DRUGS (2)
  1. INSULIN [Concomitant]
     Active Substance: INSULIN NOS
     Indication: PRODUCT USED FOR UNKNOWN INDICATION
  2. EYLEA [Suspect]
     Active Substance: AFLIBERCEPT
     Indication: DIABETIC RETINAL OEDEMA

REACTIONS (3)
  - Retinal degeneration [Unknown]
  - Macular oedema [Unknown]
  - Inappropriate schedule of product administration [Unknown]
